FAERS Safety Report 11768636 (Version 1)
Quarter: 2015Q4

REPORT INFORMATION
  Report Type: Spontaneous
  Country: US (occurrence: US)
  Receive Date: 20151123
  Receipt Date: 20151123
  Transmission Date: 20160304
  Serious: No
  Sender: FDA-Public Use
  Company Number: US-TEVA-610397USA

PATIENT
  Sex: Female

DRUGS (1)
  1. PROAIR HFA [Suspect]
     Active Substance: ALBUTEROL SULFATE
     Indication: PRODUCT USED FOR UNKNOWN INDICATION
     Dosage: 3 TO 4 TIMES DAILY TWO PUFFS EACH
     Route: 045

REACTIONS (3)
  - Retching [Unknown]
  - Device malfunction [Unknown]
  - Throat irritation [Unknown]

NARRATIVE: CASE EVENT DATE: 2015
